FAERS Safety Report 4875390-6 (Version None)
Quarter: 2006Q1

REPORT INFORMATION
  Report Type: 
  Country: None (occurrence: None)
  Receive Date: 20060109
  Receipt Date: 20051005
  Transmission Date: 20060701
  Serious: Yes (Hospitalization, Disabling)
  Sender: FDA-Public Use
  Company Number: US-MERCK-0510USA04392

PATIENT
  Age: 50 Year
  Sex: Female
  Weight: 82 kg

DRUGS (2)
  1. VIOXX [Suspect]
     Indication: ARTHRITIS
     Route: 048
  2. SYNTHROID [Concomitant]
     Route: 065

REACTIONS (9)
  - ARTHRITIS [None]
  - CARDIAC VALVE DISEASE [None]
  - CARDIOVASCULAR DISORDER [None]
  - HAND FRACTURE [None]
  - HOSPITALISATION [None]
  - LIMB INJURY [None]
  - PALPITATIONS [None]
  - PRESCRIBED OVERDOSE [None]
  - THYROID DISORDER [None]
